FAERS Safety Report 17786132 (Version 3)
Quarter: 2020Q3

REPORT INFORMATION
  Report Type: Report from Study
  Country: US (occurrence: US)
  Receive Date: 20200513
  Receipt Date: 20200723
  Transmission Date: 20201102
  Serious: Yes (Hospitalization, Other)
  Sender: FDA-Public Use
  Company Number: US-APOPHARMA-2020AP010571

PATIENT
  Age: 62 Year
  Sex: Female
  Weight: 77 kg

DRUGS (23)
  1. ALBUTEROL HFA [Concomitant]
     Active Substance: ALBUTEROL SULFATE
     Dosage: 90?180 MG, PRN
     Route: 055
  2. LEVOTHYROXINE. [Concomitant]
     Active Substance: LEVOTHYROXINE
     Dosage: 50 ?G, TUE, THUR, SAT
     Route: 048
  3. TREPROSTINIL. [Concomitant]
     Active Substance: TREPROSTINIL
     Dosage: 35 MG/KG/MIN CONTINUOUS INFUSION
     Route: 058
  4. LASIX [Concomitant]
     Active Substance: FUROSEMIDE
  5. OXYCONTIN [Concomitant]
     Active Substance: OXYCODONE HYDROCHLORIDE
     Dosage: 10 MG, BID
     Route: 048
  6. DILAUDID [Concomitant]
     Active Substance: HYDROMORPHONE HYDROCHLORIDE
     Dosage: 2?4 MG, Q.4H. PRN
     Route: 048
  7. FOLIC ACID. [Concomitant]
     Active Substance: FOLIC ACID
     Dosage: 1 MG, QD
     Route: 048
  8. DEFERIPRONE [Suspect]
     Active Substance: DEFERIPRONE
     Dosage: 26 MG/KG, TID
     Route: 048
     Dates: start: 201909, end: 2020
  9. DEFERIPRONE [Suspect]
     Active Substance: DEFERIPRONE
     Dosage: 26 MG/KG, TID
     Route: 048
     Dates: start: 20190529, end: 201909
  10. ELIQUIS [Concomitant]
     Active Substance: APIXABAN
     Dosage: 5 MG, BID
     Route: 048
  11. HYDROXYUREA. [Concomitant]
     Active Substance: HYDROXYUREA
     Dosage: 500 MG, BID
     Route: 048
  12. LASIX [Concomitant]
     Active Substance: FUROSEMIDE
     Dosage: 40 MG, QD
     Route: 048
  13. CALCIUM D [Concomitant]
     Active Substance: CALCIUM\VITAMIN D
     Dosage: 1500/4000 MG, BID
     Route: 048
  14. SPIRIVA [Concomitant]
     Active Substance: TIOTROPIUM BROMIDE MONOHYDRATE
     Dosage: 18 ?G, Q.H.S.
     Route: 055
  15. AMBRISENTAN [Concomitant]
     Active Substance: AMBRISENTAN
     Dosage: 10 MG, QD
     Route: 048
  16. MAGNESIUM [Concomitant]
     Active Substance: MAGNESIUM
     Dosage: 400 MG, QD
     Route: 048
  17. SINGULAIR [Concomitant]
     Active Substance: MONTELUKAST SODIUM
     Dosage: 10 MG, Q.H.S.
     Route: 048
  18. WELLBUTRIN [Concomitant]
     Active Substance: BUPROPION HYDROCHLORIDE
     Dosage: 150 MG, QD
     Route: 065
  19. ZYRTEC [Concomitant]
     Active Substance: CETIRIZINE HYDROCHLORIDE
     Dosage: 10 MG, Q.H.S.
     Route: 048
  20. DEFERIPRONE [Suspect]
     Active Substance: DEFERIPRONE
     Dosage: 26 MG/KG, TID
     Route: 048
     Dates: start: 2020
  21. CELEXA [Concomitant]
     Active Substance: CITALOPRAM HYDROBROMIDE
     Dosage: 40 MG, QD
     Route: 048
  22. FLONASE [Concomitant]
     Active Substance: FLUTICASONE PROPIONATE
     Dosage: 50 ?G, QD
     Route: 045
  23. LEVOTHYROXINE. [Concomitant]
     Active Substance: LEVOTHYROXINE
     Dosage: 25 ?G, SUN, MON, WED, FRI
     Route: 048

REACTIONS (1)
  - Hypoxia [Recovering/Resolving]

NARRATIVE: CASE EVENT DATE: 20200428
